FAERS Safety Report 5334773-0 (Version None)
Quarter: 2007Q2

REPORT INFORMATION
  Report Type: 
  Country: None (occurrence: None)
  Receive Date: 20070525
  Receipt Date: 20070518
  Transmission Date: 20071010
  Serious: Yes (Hospitalization)
  Sender: FDA-Public Use
  Company Number: GB-ROCHE-499048

PATIENT
  Age: 53 Year
  Sex: Female
  Weight: 101.6 kg

DRUGS (3)
  1. XENICAL [Suspect]
     Indication: OBESITY
     Route: 048
     Dates: start: 20070329
  2. ENALAPRIL [Concomitant]
  3. BENDROFLUAZIDE [Concomitant]

REACTIONS (3)
  - COUGH [None]
  - PLEURISY [None]
  - PNEUMONIA [None]
